FAERS Safety Report 6427175-7 (Version None)
Quarter: 2009Q4

REPORT INFORMATION
  Report Type: 
  Country: None (occurrence: None)
  Receive Date: 20091104
  Receipt Date: 20091026
  Transmission Date: 20100525
  Serious: No
  Sender: FDA-Public Use
  Company Number: US-B.I. PHARMACEUTICALS,INC./RIDGEFIELD-2009-BP-12714BP

PATIENT
  Sex: Female

DRUGS (5)
  1. SPIRIVA [Suspect]
     Indication: CHRONIC OBSTRUCTIVE PULMONARY DISEASE
     Dosage: 18 MCG
     Route: 055
     Dates: start: 20090501, end: 20091001
  2. CYMBALTA [Concomitant]
     Indication: FIBROMYALGIA
  3. NAPROXEN [Concomitant]
     Indication: BACK PAIN
  4. OXYCODONE [Concomitant]
     Indication: BACK PAIN
  5. ADVAIR DISKUS 100/50 [Concomitant]
     Indication: CHRONIC OBSTRUCTIVE PULMONARY DISEASE

REACTIONS (3)
  - DYSKINESIA [None]
  - FORMICATION [None]
  - PROTEIN TOTAL ABNORMAL [None]
